FAERS Safety Report 13495974 (Version 5)
Quarter: 2017Q3

REPORT INFORMATION
  Report Type: Spontaneous
  Country: US (occurrence: US)
  Receive Date: 20170428
  Receipt Date: 20170828
  Transmission Date: 20171127
  Serious: Yes (Hospitalization, Other)
  Sender: FDA-Public Use
  Company Number: US-PFIZER INC-2017180854

PATIENT
  Age: 43 Year
  Sex: Female
  Weight: 86 kg

DRUGS (38)
  1. EFFEXOR XR [Suspect]
     Active Substance: VENLAFAXINE HYDROCHLORIDE
     Indication: NECK PAIN
     Dosage: 150 MG, DAILY (150MG TOTAL)
     Route: 048
  2. METOPROLOL. [Concomitant]
     Active Substance: METOPROLOL
     Dosage: 100 MG, UNK
     Dates: start: 2014
  3. NORVASC [Concomitant]
     Active Substance: AMLODIPINE BESYLATE
     Dosage: 10 MG, DAILY (10 MG TOTAL)
     Route: 048
     Dates: start: 20170712
  4. VITAMIN D3 [Concomitant]
     Active Substance: CHOLECALCIFEROL
     Dosage: 5000 IU, 2X/DAY
     Route: 048
  5. FISH OIL W/OMEGA-3 FATTY ACIDS [Concomitant]
     Active Substance: FISH OIL\OMEGA-3 FATTY ACIDS
     Dosage: 1 DF, DAILY ((FISH OIL: 340MG; OMEGA-3 FATTY ACIDS: 1000MG)
     Route: 048
  6. VITAMIN A [Concomitant]
     Active Substance: VITAMIN A
     Dosage: 8000 IU, DAILY
     Route: 048
  7. EFFEXOR [Concomitant]
     Active Substance: VENLAFAXINE HYDROCHLORIDE
     Dosage: 37.5 MG, DAILY
     Route: 048
  8. ZOLOFT [Concomitant]
     Active Substance: SERTRALINE HYDROCHLORIDE
     Dosage: 50 MG, DAILY (50MG TOTAL)
     Route: 048
     Dates: start: 20170215
  9. ATIVAN [Concomitant]
     Active Substance: LORAZEPAM
     Indication: ANXIETY
     Dosage: 0.5 MG, AS NEEDED (TAKE 1 TABLET (0.5 MG TOTAL) BY MOUTH TWICE DAILY)
     Route: 048
     Dates: start: 20170224
  10. ZOLOFT [Concomitant]
     Active Substance: SERTRALINE HYDROCHLORIDE
     Dosage: 25 MG, DAILY
     Route: 048
  11. VITAMIN B12 [Concomitant]
     Active Substance: CYANOCOBALAMIN
     Dosage: 1000 UG, DAILY
     Route: 048
  12. LACTOBACILLUS GASSERI [Concomitant]
     Dosage: 1 DF, DAILY
     Route: 048
  13. PHAZYME [Concomitant]
     Active Substance: DIMETHICONE 410
     Dosage: 250 MG, DAILY
     Route: 048
  14. PRILOSEC [Concomitant]
     Active Substance: OMEPRAZOLE MAGNESIUM
     Dosage: 20 MG, 2X/DAY
     Route: 048
  15. EFFEXOR XR [Suspect]
     Active Substance: VENLAFAXINE HYDROCHLORIDE
     Dosage: 187.5 MG (150 MG + 37.5 MG), 1X/DAY
     Route: 048
     Dates: start: 2016, end: 201703
  16. HYZAAR [Concomitant]
     Active Substance: HYDROCHLOROTHIAZIDE\LOSARTAN POTASSIUM
     Dosage: 1 DF, DAILY (HYDROCHLOROTHIAZIDE; 12.5MG, LOSARTAN POTASSIUM: 100MG) (EVERY MORNING)
     Route: 048
     Dates: start: 20170223, end: 20170712
  17. OMEPRAZOLE MAGNESIUM. [Concomitant]
     Active Substance: OMEPRAZOLE MAGNESIUM
     Dosage: 20 MG, 2X/DAY
     Route: 048
  18. FERREX-150 [Concomitant]
     Dosage: 150 MG, DAILY
     Route: 048
  19. BOOSTRIX [Concomitant]
     Active Substance: TETANUS TOXOID, REDUCED DIPHTHERIA TOXOID AND ACELLULAR PERTUSSIS VACCINE, ADSORBED ANTIGENS
     Dosage: UNK
  20. ZOLOFT [Concomitant]
     Active Substance: SERTRALINE HYDROCHLORIDE
     Dosage: 50 MG, DAILY
     Route: 048
  21. EFFEXOR XR [Suspect]
     Active Substance: VENLAFAXINE HYDROCHLORIDE
     Indication: PANIC ATTACK
     Dosage: 75 MG, DAILY
     Route: 048
  22. LOPRESSOR [Concomitant]
     Active Substance: METOPROLOL TARTRATE
     Dosage: 100 MG, 2X/DAY (100MG TOTAL)
     Route: 048
     Dates: start: 20170223, end: 20170725
  23. VITAMIN E [Concomitant]
     Active Substance: .ALPHA.-TOCOPHEROL
     Dosage: 400 IU, DAILY
     Route: 048
  24. ATORVASTATIN [Concomitant]
     Active Substance: ATORVASTATIN
     Dosage: 40 MG, UNK
     Dates: start: 2014
  25. LIPITOR [Concomitant]
     Active Substance: ATORVASTATIN CALCIUM
     Dosage: 40 MG, DAILY (40 MG TOTAL)
     Route: 048
     Dates: start: 20170424
  26. MIRALAX [Concomitant]
     Active Substance: POLYETHYLENE GLYCOL 3350
     Dosage: 17 G, UNK (AS DIRECTED)
     Route: 048
     Dates: start: 20170712
  27. KLONOPIN [Concomitant]
     Active Substance: CLONAZEPAM
     Indication: PANIC DISORDER
  28. NEURONTIN [Concomitant]
     Active Substance: GABAPENTIN
     Dosage: 300 MG, 1X/DAY (AT BEDTIME)
     Route: 048
  29. LUTEIN ZEAXANTHIN [Concomitant]
     Dosage: 1 DF, DAILY (XANTOFYL: 25MG; ZEAXANTHIN: 5MG)
     Route: 048
     Dates: start: 20170223
  30. AMBIEN [Concomitant]
     Active Substance: ZOLPIDEM TARTRATE
     Indication: SLEEP DISORDER
     Dosage: 10 MG, 1X/DAY (10 MG TOTAL AT BEDTIME)(MAY REPEAT AS NEEDED)
     Route: 048
     Dates: start: 20170206
  31. PROZAC [Concomitant]
     Active Substance: FLUOXETINE HYDROCHLORIDE
     Indication: PANIC DISORDER
     Dosage: 20 MG, DAILY
     Route: 048
  32. GLYCOLAX [Concomitant]
     Active Substance: POLYETHYLENE GLYCOL 3350
     Dosage: 17 G, UNK (AS DIRECTED)
     Route: 048
     Dates: start: 20170712
  33. ATARAX [Concomitant]
     Active Substance: HYDROXYZINE HYDROCHLORIDE
     Dosage: 25 MG, 3X/DAY
     Route: 048
  34. LOSARTAN AND HYDROCHLOROTHIAZIDE [Concomitant]
     Active Substance: HYDROCHLOROTHIAZIDE\LOSARTAN POTASSIUM
     Dosage: 100-12.5 MG, UNK
     Dates: start: 2014
  35. AMLODIPINE [Concomitant]
     Active Substance: AMLODIPINE BESYLATE
     Dosage: 5 MG, UNK
     Dates: start: 2014
  36. KLONOPIN [Concomitant]
     Active Substance: CLONAZEPAM
     Indication: ANXIETY
     Dosage: 0.5 MG, AS NEEDED (1/2-TABLET P.O. TWICE DAILY AS NEEDED TO BE TAKEN EVERY BEDTIME, (0.25-0.5 MG TO)
     Route: 048
  37. FLEXERIL [Concomitant]
     Active Substance: CYCLOBENZAPRINE HYDROCHLORIDE
     Indication: MUSCLE SPASMS
     Dosage: 10 MG, AS NEEDED (10 MG TOTAL)(TWICE DAILY)
     Route: 048
  38. FERROUS SULFATE. [Concomitant]
     Active Substance: FERROUS SULFATE
     Dosage: 60 MG, DAILY
     Route: 048

REACTIONS (15)
  - Headache [Unknown]
  - Dysgraphia [Not Recovered/Not Resolved]
  - Drug ineffective [Unknown]
  - Panic attack [Not Recovered/Not Resolved]
  - Weight increased [Not Recovered/Not Resolved]
  - Hepatic failure [Not Recovered/Not Resolved]
  - Glucose tolerance impaired [Not Recovered/Not Resolved]
  - Mental disorder [Not Recovered/Not Resolved]
  - Anger [Recovered/Resolved]
  - Condition aggravated [Not Recovered/Not Resolved]
  - Paraesthesia [Unknown]
  - Ulcer [Unknown]
  - Insomnia [Not Recovered/Not Resolved]
  - Suicidal ideation [Unknown]
  - Blood cholesterol increased [Not Recovered/Not Resolved]

NARRATIVE: CASE EVENT DATE: 2016
